FAERS Safety Report 9165599 (Version 1)
Quarter: 2013Q1

REPORT INFORMATION
  Report Type: Spontaneous
  Country: US (occurrence: US)
  Receive Date: 20130315
  Receipt Date: 20130315
  Transmission Date: 20140127
  Serious: No
  Sender: FDA-Public Use
  Company Number: US-BAYER-2013-032314

PATIENT
  Age: 81 Year
  Sex: Female
  Weight: 54.42 kg

DRUGS (2)
  1. ALEVE [Suspect]
     Indication: ARTHRALGIA
     Dosage: 1 DF, PRN
     Route: 048
     Dates: start: 201302
  2. CHLORAZEPAM [Concomitant]

REACTIONS (1)
  - Drug ineffective [None]
